FAERS Safety Report 9401326 (Version 1)
Quarter: 2013Q3

REPORT INFORMATION
  Report Type: Spontaneous
  Country: US (occurrence: US)
  Receive Date: 20130715
  Receipt Date: 20130715
  Transmission Date: 20140515
  Serious: No
  Sender: FDA-Public Use
  Company Number: US-US-EMD SERONO, INC.-7162174

PATIENT
  Sex: Female
  Weight: 86 kg

DRUGS (2)
  1. REBIF [Suspect]
     Indication: MULTIPLE SCLEROSIS
     Route: 058
     Dates: start: 20090921
  2. ZANTAC [Concomitant]
     Indication: DYSPEPSIA
     Dates: start: 200909

REACTIONS (1)
  - Uterine leiomyoma [Not Recovered/Not Resolved]
